FAERS Safety Report 9613339 (Version 2)
Quarter: 2013Q4

REPORT INFORMATION
  Report Type: Spontaneous
  Country: CA (occurrence: CA)
  Receive Date: 20131010
  Receipt Date: 20131023
  Transmission Date: 20140711
  Serious: Yes (Hospitalization, Other)
  Sender: FDA-Public Use
  Company Number: CA-BAXTER-2013BAX038974

PATIENT
  Age: 57 Year
  Sex: Male

DRUGS (3)
  1. DIANEAL PD4 SOLUTION WITH 1.5% DEXTROSE AND 2.5 MEQ/L CALCIUM [Suspect]
     Indication: PERITONEAL DIALYSIS
     Route: 033
  2. DIANEAL PD4 SOLUTION WITH 2.5% DEXTROSE AND 2.5 MEQ/L CALCIUM [Suspect]
     Indication: PERITONEAL DIALYSIS
     Dosage: 3 BAGS
     Route: 033
  3. EXTRANEAL [Suspect]
     Indication: PERITONEAL DIALYSIS
     Dosage: 1 BAG
     Route: 033

REACTIONS (9)
  - Heart rate irregular [Recovering/Resolving]
  - Pain in jaw [Recovering/Resolving]
  - Non-cardiac chest pain [Recovering/Resolving]
  - Skin ulcer [Recovered/Resolved]
  - Cardiac disorder [Recovering/Resolving]
  - Musculoskeletal pain [Recovering/Resolving]
  - Blood pressure decreased [Unknown]
  - Blood potassium decreased [Recovering/Resolving]
  - Pain [Recovering/Resolving]
